FAERS Safety Report 8221885-7 (Version None)
Quarter: 2012Q1

REPORT INFORMATION
  Report Type: 
  Country: None (occurrence: None)
  Receive Date: 20120307
  Receipt Date: 20110605
  Transmission Date: 20120608
  Serious: Yes (Other)
  Sender: FDA-Public Use
  Company Number: PHHY2011US38700

PATIENT
  Sex: Female

DRUGS (14)
  1. VITAMN D (ERGOCALCIFEROL) [Concomitant]
  2. KLONOPNI (CLONAZEPAM) [Concomitant]
  3. PROGESTERONE [Concomitant]
  4. VITAMIN B12 [Concomitant]
  5. RUFINAMIDE (RUFINAMIDE) [Concomitant]
  6. DOXEPIN HCL [Concomitant]
  7. MULTIVITAMINS (ASCORBIC ACID, ERGOCALCIFEROL, FOLIC ACID, NICOTINAMIDE [Concomitant]
  8. POTASSIUM CHLORIDE [Concomitant]
  9. LAMICTAL [Concomitant]
  10. CALCIUM CARBONATE [Concomitant]
  11. AFINITOR [Suspect]
     Indication: TUBEROUS SCLEROSIS
     Dosage: 5 MG, DAILY, ORAL ; 7.5 MG, DAILY, ORAL
     Route: 048
     Dates: start: 20101227
  12. TOPAMAX [Concomitant]
  13. ZINC (ZINC) [Concomitant]
  14. MAGNESIUM (MAGNESIUM) [Concomitant]

REACTIONS (2)
  - DIARRHOEA [None]
  - BLOOD CREATININE INCREASED [None]
